FAERS Safety Report 8821030 (Version 2)
Quarter: 2012Q4

REPORT INFORMATION
  Report Type: 
  Country: HR (occurrence: HR)
  Receive Date: 20121002
  Receipt Date: 20121116
  Transmission Date: 20130627
  Serious: Yes (Hospitalization)
  Sender: FDA-Public Use
  Company Number: HR-WATSON-2012-16721

PATIENT
  Age: 31 Year
  Sex: Female

DRUGS (6)
  1. TACROLIMUS (UNKNOWN) [Suspect]
     Indication: IMMUNOSUPPRESSION
     Dosage: UNK Unk, unknown
     Route: 065
  2. MYCOPHENOLATE MOFETIL (UNKNOWN) [Suspect]
     Indication: IMMUNOSUPPRESSION
     Dosage: UNK
     Route: 065
  3. PREDNISONE (UNKNOWN) [Suspect]
     Indication: IMMUNOSUPPRESSION
     Dosage: UNK
     Route: 065
  4. ANTITHYMOCYTE GLOBULIN [Suspect]
     Indication: IMMUNOSUPPRESSION
     Dosage: UNK
     Route: 065
  5. CASPOFUNGIN [Concomitant]
     Indication: ANTIFUNGAL TREATMENT
     Dosage: UNK
     Route: 065
  6. VORICONAZOLE [Concomitant]
     Indication: ANTIFUNGAL TREATMENT
     Dosage: UNK
     Route: 065

REACTIONS (5)
  - Thyroiditis [Recovered/Resolved]
  - Transplant rejection [Recovered/Resolved]
  - Drug ineffective [Recovered/Resolved]
  - Aspergillosis [Recovered/Resolved]
  - Bronchopulmonary aspergillosis [Recovered/Resolved]
